FAERS Safety Report 8891359 (Version 1)
Quarter: 2012Q4

REPORT INFORMATION
  Report Type: Spontaneous
  Country: US (occurrence: None)
  Receive Date: 20121105
  Receipt Date: 20121105
  Transmission Date: 20130627
  Serious: No
  Sender: FDA-Public Use
  Company Number: None

PATIENT
  Age: 40 Year
  Sex: Female

DRUGS (1)
  1. MIRENA IUD [Suspect]
     Indication: BLEEDING MENSTRUAL HEAVY

REACTIONS (2)
  - Vaginal discharge [None]
  - Vulvovaginal discomfort [None]
